FAERS Safety Report 7334262-8 (Version None)
Quarter: 2011Q1

REPORT INFORMATION
  Report Type: 
  Country: None (occurrence: None)
  Receive Date: 20110302
  Receipt Date: 20110302
  Transmission Date: 20110831
  Serious: Yes (Hospitalization, Other)
  Sender: FDA-Public Use
  Company Number: None

PATIENT
  Age: 38 Year
  Sex: Female
  Weight: 74.8435 kg

DRUGS (1)
  1. OCELLA 3 MG/0.03 MG BAYER HEALTHCARE PHARMACEUTICALS I [Suspect]
     Indication: DYSMENORRHOEA
     Dosage: 1 PILL ONCE DAILY PO
     Route: 048
     Dates: start: 20090301, end: 20090901

REACTIONS (2)
  - PANIC ATTACK [None]
  - DYSPEPSIA [None]
